APPROVED DRUG PRODUCT: ORAPRED
Active Ingredient: PREDNISOLONE SODIUM PHOSPHATE
Strength: EQ 15MG BASE/5ML **Federal Register determination that product was not discontinued or withdrawn for safety or effectiveness reasons**
Dosage Form/Route: SOLUTION;ORAL
Application: A075117 | Product #001
Applicant: CONCORDIA PHARMACEUTICALS INC
Approved: Dec 14, 2000 | RLD: No | RS: No | Type: DISCN